FAERS Safety Report 10557784 (Version 1)
Quarter: 2014Q4

REPORT INFORMATION
  Report Type: Spontaneous
  Country: US (occurrence: US)
  Receive Date: 20141031
  Receipt Date: 20141031
  Transmission Date: 20150529
  Serious: No
  Sender: FDA-Public Use
  Company Number: US-BAYER-2014-160795

PATIENT
  Sex: Female

DRUGS (4)
  1. MIDOL [Suspect]
     Active Substance: IBUPROFEN
     Indication: IRRITABILITY
  2. MIDOL [Suspect]
     Active Substance: IBUPROFEN
     Indication: DYSMENORRHOEA
     Dosage: 1 DF, UNK
     Route: 048
  3. MIDOL [Suspect]
     Active Substance: IBUPROFEN
     Indication: FATIGUE
  4. MIDOL [Suspect]
     Active Substance: IBUPROFEN
     Indication: ABDOMINAL DISTENSION

REACTIONS (1)
  - Therapeutic response unexpected [Unknown]
